FAERS Safety Report 19270815 (Version 1)
Quarter: 2021Q2

REPORT INFORMATION
  Report Type: Spontaneous
  Country: US (occurrence: US)
  Receive Date: 20210518
  Receipt Date: 20210518
  Transmission Date: 20210717
  Serious: Yes (Other)
  Sender: FDA-Public Use
  Company Number: US-GLENMARK PHARMACEUTICALS-2020GMK049130

PATIENT

DRUGS (4)
  1. VIMPAT [Concomitant]
     Active Substance: LACOSAMIDE
     Indication: SEIZURE
     Dosage: UNK
     Route: 065
  2. CLONAZEPAM. [Concomitant]
     Active Substance: CLONAZEPAM
     Indication: SEIZURE
     Dosage: UNK
     Route: 065
  3. TOPIRAMATE. [Suspect]
     Active Substance: TOPIRAMATE
     Indication: SEIZURE
     Dosage: UNK (PREVIOUS PRESCRIPTION)
     Route: 048
     Dates: start: 2009
  4. TOPIRAMATE. [Suspect]
     Active Substance: TOPIRAMATE
     Indication: MIGRAINE
     Dosage: 150 MILLIGRAM, BID (RECENT PRESCRIPTION)
     Route: 048
     Dates: start: 20200807

REACTIONS (5)
  - Weight decreased [Recovered/Resolved]
  - Thyroid hormones increased [Unknown]
  - Alanine aminotransferase decreased [Unknown]
  - Non-high-density lipoprotein cholesterol increased [Unknown]
  - Drug ineffective [Unknown]

NARRATIVE: CASE EVENT DATE: 2009
